FAERS Safety Report 9275868 (Version 1)
Quarter: 2012Q4

REPORT INFORMATION
  Report Type: Spontaneous
  Country: US (occurrence: None)
  Receive Date: 20121109
  Receipt Date: 20121109
  Transmission Date: 20130627
  Serious: Yes (Other)
  Sender: FDA-Public Use
  Company Number: 2011S1000624

PATIENT
  Age: 47 Year
  Sex: Male
  Weight: 75 kg

DRUGS (8)
  1. CUBICIN [Suspect]
     Indication: ENDOCARDITIS ENTEROCOCCAL
     Dosage: Q24H
     Route: 042
     Dates: start: 20110915
  2. CARVEDILOL [Concomitant]
  3. ALL OTHER THERAPEUTIC PRODUCTS [Concomitant]
  4. ENOXAPARIN [Concomitant]
  5. MULTIVITAMINS [Concomitant]
  6. PANTOPRAZOLE [Concomitant]
  7. LORAZEPAM [Concomitant]
  8. CEFTRIAXONE [Concomitant]

REACTIONS (1)
  - Hyperkalaemia [None]
